FAERS Safety Report 25331232 (Version 3)
Quarter: 2025Q3

REPORT INFORMATION
  Report Type: Spontaneous
  Country: US (occurrence: US)
  Receive Date: 20250519
  Receipt Date: 20250702
  Transmission Date: 20251021
  Serious: No
  Sender: VERTEX
  Company Number: US-VERTEX PHARMACEUTICALS-2025-007361

PATIENT

DRUGS (1)
  1. ALYFTREK [Suspect]
     Active Substance: DEUTIVACAFTOR\TEZACAFTOR\VANZACAFTOR
     Indication: Cystic fibrosis
     Dosage: 2 PILLS ONCE A DAY
     Route: 048

REACTIONS (1)
  - Brain fog [Recovered/Resolved]
